FAERS Safety Report 17019611 (Version 2)
Quarter: 2020Q1

REPORT INFORMATION
  Report Type: Report from Study
  Country: US (occurrence: US)
  Receive Date: 20191112
  Receipt Date: 20200320
  Transmission Date: 20200409
  Serious: Yes (Other)
  Sender: FDA-Public Use
  Company Number: US-AMGEN-USASL2019186906

PATIENT
  Age: 45 Year
  Sex: Female

DRUGS (1)
  1. ENBREL [Suspect]
     Active Substance: ETANERCEPT
     Indication: RHEUMATOID ARTHRITIS
     Dosage: UNK, QWK
     Route: 065

REACTIONS (6)
  - Systemic lupus erythematosus [Unknown]
  - Anosmia [Unknown]
  - Anaemia [Unknown]
  - Memory impairment [Unknown]
  - Fungal infection [Not Recovered/Not Resolved]
  - Intentional dose omission [Unknown]
